FAERS Safety Report 6941342-5 (Version None)
Quarter: 2010Q3

REPORT INFORMATION
  Report Type: 
  Country: None (occurrence: None)
  Receive Date: 20100824
  Receipt Date: 20100824
  Transmission Date: 20110219
  Serious: Yes (Hospitalization)
  Sender: FDA-Public Use
  Company Number: None

PATIENT
  Age: 73 Year
  Sex: Male
  Weight: 110.15 kg

DRUGS (1)
  1. AMINOPHYLLINE [Suspect]
     Dosage: 5 MG ONCE IV
     Route: 042
     Dates: start: 20100803, end: 20100803

REACTIONS (5)
  - BLOOD PRESSURE INCREASED [None]
  - CONVULSION [None]
  - OXYGEN SATURATION DECREASED [None]
  - TONIC CLONIC MOVEMENTS [None]
  - UNRESPONSIVE TO STIMULI [None]
